FAERS Safety Report 9011375 (Version 1)
Quarter: 2013Q1

REPORT INFORMATION
  Report Type: Spontaneous
  Country: US (occurrence: US)
  Receive Date: 20130108
  Receipt Date: 20130108
  Transmission Date: 20140127
  Serious: No
  Sender: FDA-Public Use
  Company Number: US-PFIZER INC-2013007269

PATIENT
  Age: 48 Year
  Sex: Female
  Weight: 58.96 kg

DRUGS (1)
  1. NEURONTIN [Suspect]
     Indication: SCIATIC NERVE INJURY
     Dosage: 800 MG, 3X/DAY
     Dates: start: 2008, end: 2012

REACTIONS (2)
  - Feeling abnormal [Not Recovered/Not Resolved]
  - Pain [Not Recovered/Not Resolved]
